FAERS Safety Report 20813434 (Version 1)
Quarter: 2022Q2

REPORT INFORMATION
  Report Type: Spontaneous
  Country: US (occurrence: None)
  Receive Date: 20220510
  Receipt Date: 20220510
  Transmission Date: 20220720
  Serious: Yes (Death)
  Sender: FDA-Public Use
  Company Number: None

PATIENT
  Age: 47 Year
  Sex: Male

DRUGS (2)
  1. MYCOPHENOLIC ACID [Suspect]
     Active Substance: MYCOPHENOLIC ACID
     Indication: Liver transplant
     Dosage: 360MG BID ORAL?
     Route: 048
     Dates: start: 20211217, end: 20220504
  2. TACROLIMUS [Suspect]
     Active Substance: TACROLIMUS
     Indication: Liver transplant
     Dosage: 10MG BID ORAL
     Route: 048
     Dates: start: 20220220, end: 20220504

REACTIONS (1)
  - Septic shock [None]

NARRATIVE: CASE EVENT DATE: 20220504
